FAERS Safety Report 13281974 (Version 1)
Quarter: 2017Q1

REPORT INFORMATION
  Report Type: Spontaneous
  Country: US (occurrence: US)
  Receive Date: 20170301
  Receipt Date: 20170301
  Transmission Date: 20170428
  Serious: Yes (Hospitalization)
  Sender: FDA-Public Use
  Company Number: None

PATIENT
  Sex: Female

DRUGS (5)
  1. CEFTRIAXONE. [Suspect]
     Active Substance: CEFTRIAXONE
  2. CEFDINIR. [Suspect]
     Active Substance: CEFDINIR
  3. OMEPRAZOLE. [Suspect]
     Active Substance: OMEPRAZOLE
  4. CIPROFLOXACIN. [Suspect]
     Active Substance: CIPROFLOXACIN
  5. NITROFURANTOIN. [Suspect]
     Active Substance: NITROFURANTOIN

REACTIONS (3)
  - Vomiting [None]
  - Hypotension [None]
  - Nausea [None]

NARRATIVE: CASE EVENT DATE: 20160601
